FAERS Safety Report 7404228-8 (Version None)
Quarter: 2011Q1

REPORT INFORMATION
  Report Type: 
  Country: None (occurrence: None)
  Receive Date: 20110331
  Receipt Date: 20110315
  Transmission Date: 20110831
  Serious: Yes (Other)
  Sender: FDA-Public Use
  Company Number: DSA_45187_2011

PATIENT
  Age: 61 Year
  Sex: Female

DRUGS (15)
  1. BENDROFLUMETHIAZIDE [Concomitant]
  2. TONIC FROM A MEDICAL HERBALIST [Concomitant]
  3. LOSARTAN [Concomitant]
  4. TRITACE (TRITACE - RAMIPRIL) (NOT SPECIFIED) [Suspect]
     Indication: BLOOD PRESSURE
     Dosage: (0.75MG DAILY) ; (1.25MG TABLET; 1/2 TABLET DAILY) ; (INCREASED 2.5MG)
     Dates: start: 20101101, end: 20101205
  5. TRITACE (TRITACE - RAMIPRIL) (NOT SPECIFIED) [Suspect]
     Indication: BLOOD PRESSURE
     Dosage: (0.75MG DAILY) ; (1.25MG TABLET; 1/2 TABLET DAILY) ; (INCREASED 2.5MG)
     Dates: start: 20101206, end: 20101216
  6. TRITACE (TRITACE - RAMIPRIL) (NOT SPECIFIED) [Suspect]
     Indication: BLOOD PRESSURE
     Dosage: (0.75MG DAILY) ; (1.25MG TABLET; 1/2 TABLET DAILY) ; (INCREASED 2.5MG)
     Dates: start: 20101118, end: 20101101
  7. TILDIEM LA - DILTIAZEM HYDROCHLORIDE [Suspect]
     Indication: PRODUCT USED FOR UNKNOWN INDICATION
     Dosage: (200 MG QD) ; (REDUCED DOSE)
     Dates: start: 20101006
  8. SIMVASTATIN [Suspect]
     Indication: PRODUCT USED FOR UNKNOWN INDICATION
     Dosage: (40 MG QD, EVERY NIGHT) ; (REDUCED TO HALF DOSE)
     Dates: start: 20100101
  9. SIMVASTATIN [Suspect]
     Indication: PRODUCT USED FOR UNKNOWN INDICATION
     Dosage: (40 MG QD, EVERY NIGHT) ; (REDUCED TO HALF DOSE)
     Dates: start: 20100913, end: 20100101
  10. ASPIRIN [Concomitant]
  11. CHAPARRAL DANDELION BLEND [Concomitant]
  12. ALL OTHER THERAPEUTIC PRODUCTS [Concomitant]
  13. BISOPROLOL FUMARATE [Suspect]
     Indication: PRODUCT USED FOR UNKNOWN INDICATION
     Dosage: (DF)
     Dates: start: 20101001, end: 20101006
  14. BETA BLOCKING AGENTS [Concomitant]
  15. INDAPAMIDE [Concomitant]

REACTIONS (12)
  - AURA [None]
  - FEELING ABNORMAL [None]
  - NAUSEA [None]
  - HAEMORRHAGIC INFARCTION [None]
  - FACIAL PAIN [None]
  - MEIBOMIANITIS [None]
  - VITREOUS DISORDER [None]
  - ANXIETY [None]
  - VERTIGO [None]
  - VISION BLURRED [None]
  - BLOOD PRESSURE INCREASED [None]
  - DIZZINESS [None]
